FAERS Safety Report 7279257-8 (Version None)
Quarter: 2011Q1

REPORT INFORMATION
  Report Type: 
  Country: None (occurrence: None)
  Receive Date: 20110207
  Receipt Date: 20110131
  Transmission Date: 20110831
  Serious: Yes (Life-Threatening, Hospitalization, Other)
  Sender: FDA-Public Use
  Company Number: US-US-EMD SERONO, INC.-7037411

PATIENT
  Sex: Male
  Weight: 84 kg

DRUGS (3)
  1. REBIF [Suspect]
     Route: 058
     Dates: start: 20101130
  2. BACLOFEN [Concomitant]
     Indication: MUSCLE SPASTICITY
     Route: 037
  3. REBIF [Suspect]
     Indication: MULTIPLE SCLEROSIS
     Route: 058
     Dates: start: 20101119, end: 20101130

REACTIONS (2)
  - PNEUMONIA [None]
  - CERVICAL SPINAL STENOSIS [None]
